FAERS Safety Report 4342539-3 (Version None)
Quarter: 2004Q2

REPORT INFORMATION
  Report Type: 
  Country: None (occurrence: None)
  Receive Date: 20040419
  Receipt Date: 20040419
  Transmission Date: 20050107
  Serious: No
  Sender: FDA-Public Use
  Company Number: None

PATIENT
  Age: 68 Year
  Sex: Male
  Weight: 86 kg

DRUGS (1)
  1. VALDECOXIB [Suspect]
     Indication: BACK PAIN
     Dosage: 10 MG PO
     Route: 048

REACTIONS (1)
  - ALOPECIA [None]
